FAERS Safety Report 7233511-4 (Version None)
Quarter: 2011Q1

REPORT INFORMATION
  Report Type: 
  Country: None (occurrence: None)
  Receive Date: 20110113
  Receipt Date: 20110113
  Transmission Date: 20110831
  Serious: No
  Sender: FDA-Public Use
  Company Number: None

PATIENT
  Age: 52 Year
  Sex: Female
  Weight: 87.7 kg

DRUGS (2)
  1. GEBAUER'S ETHYL CHLORIDE [Suspect]
     Indication: LOCAL ANAESTHESIA
     Dosage: ETHYL CHLORIDE ONCE 060
     Dates: start: 20101223
  2. ZOLADEX [Suspect]
     Indication: BREAST CANCER
     Dosage: ZOLADEX 10.8 MG EVERY 3 MONTHS 057

REACTIONS (8)
  - IMPLANT SITE ERYTHEMA [None]
  - APPLICATION SITE DISCOLOURATION [None]
  - POST PROCEDURAL COMPLICATION [None]
  - IMPLANT SITE PAIN [None]
  - APPLICATION SITE INDURATION [None]
  - THERAPEUTIC RESPONSE DECREASED [None]
  - BLISTER [None]
  - CHEMICAL INJURY [None]
